FAERS Safety Report 4407167-X (Version None)
Quarter: 2004Q3

REPORT INFORMATION
  Report Type: 
  Country: None (occurrence: None)
  Receive Date: 20040723
  Receipt Date: 20040723
  Transmission Date: 20050211
  Serious: Yes (Other)
  Sender: FDA-Public Use
  Company Number: None

PATIENT
  Age: 63 Year
  Sex: Male
  Weight: 90.7 kg

DRUGS (2)
  1. LISINOPRIL [Suspect]
  2. SIMVASTATIN [Concomitant]

REACTIONS (1)
  - COUGH [None]
